FAERS Safety Report 9263641 (Version 1)
Quarter: 2013Q2

REPORT INFORMATION
  Report Type: Spontaneous
  Country: US (occurrence: US)
  Receive Date: 20130430
  Receipt Date: 20130430
  Transmission Date: 20140414
  Serious: No
  Sender: FDA-Public Use
  Company Number: US-COVIDIEN/TYCO HEALTHCARE/MALLINCKRODT-T201201764

PATIENT
  Age: 57 Year
  Sex: Male

DRUGS (2)
  1. METHYLIN EXTENDED-RELEASE [Suspect]
     Indication: ATTENTION DEFICIT/HYPERACTIVITY DISORDER
     Dosage: UNK
  2. SAW PALMETTO                       /00833501/ [Concomitant]
     Dosage: UNK

REACTIONS (1)
  - Therapeutic response unexpected [None]
